FAERS Safety Report 5133224-9 (Version None)
Quarter: 2006Q4

REPORT INFORMATION
  Report Type: 
  Country: None (occurrence: None)
  Receive Date: 20061018
  Receipt Date: 20061011
  Transmission Date: 20070319
  Serious: Yes (Hospitalization, Other)
  Sender: FDA-Public Use
  Company Number: 128734

PATIENT
  Age: 83 Year
  Sex: Male

DRUGS (2)
  1. DICLOFENAC SODIUM [Suspect]
  2. CLOPIDOGREL [Suspect]

REACTIONS (5)
  - EYE HAEMORRHAGE [None]
  - RETINAL DETACHMENT [None]
  - VISUAL ACUITY REDUCED [None]
  - VITREOUS DISORDER [None]
  - VITREOUS HAEMORRHAGE [None]
